FAERS Safety Report 6656784-5 (Version None)
Quarter: 2010Q1

REPORT INFORMATION
  Report Type: 
  Country: None (occurrence: None)
  Receive Date: 20100329
  Receipt Date: 20100323
  Transmission Date: 20100710
  Serious: Yes (Other)
  Sender: FDA-Public Use
  Company Number: JP-MERCK-1003USA04295

PATIENT
  Age: 84 Year
  Sex: Female

DRUGS (3)
  1. JANUVIA [Suspect]
     Route: 048
     Dates: start: 20100301, end: 20100303
  2. ACTOS [Concomitant]
     Route: 048
  3. AMARYL [Concomitant]
     Route: 048

REACTIONS (3)
  - DEMENTIA [None]
  - DIZZINESS [None]
  - FEELING ABNORMAL [None]
